FAERS Safety Report 4597491-2 (Version None)
Quarter: 2005Q1

REPORT INFORMATION
  Report Type: 
  Country: None (occurrence: None)
  Receive Date: 20050303
  Receipt Date: 20050222
  Transmission Date: 20050727
  Serious: Yes (Other)
  Sender: FDA-Public Use
  Company Number: JP-ROCHE-396051

PATIENT
  Age: 55 Year
  Sex: Male

DRUGS (8)
  1. TORSEMIDE [Suspect]
     Indication: DRUG USE FOR UNKNOWN INDICATION
     Route: 048
  2. BEZATOL SR [Suspect]
     Indication: HYPERLIPIDAEMIA
     Route: 048
     Dates: start: 20030615
  3. BASEN [Concomitant]
     Route: 048
  4. NORVASC [Concomitant]
     Route: 048
  5. ACECOL [Concomitant]
     Route: 048
  6. CARDENALIN [Concomitant]
     Route: 048
  7. PENFILL 30R [Concomitant]
     Route: 042
  8. NOVORAPID [Concomitant]
     Route: 042

REACTIONS (1)
  - RHABDOMYOLYSIS [None]
